FAERS Safety Report 6944826-9 (Version None)
Quarter: 2010Q3

REPORT INFORMATION
  Report Type: 
  Country: None (occurrence: None)
  Receive Date: 20100827
  Receipt Date: 20100818
  Transmission Date: 20110219
  Serious: Yes (Other)
  Sender: FDA-Public Use
  Company Number: CA-JNJFOC-20100806762

PATIENT
  Sex: Female
  Weight: 59.6 kg

DRUGS (21)
  1. REMICADE [Suspect]
     Indication: EYE DISORDER
     Dosage: LOADING DOSE
     Route: 042
  2. REMICADE [Suspect]
     Route: 042
  3. REMICADE [Suspect]
     Dosage: INFUSION 25
     Route: 042
  4. REMICADE [Suspect]
     Dosage: INFUSION #70
     Route: 042
  5. REMICADE [Suspect]
     Route: 042
  6. REMICADE [Suspect]
     Dosage: INFUSIONS #S 9-24
     Route: 042
  7. REMICADE [Suspect]
     Dosage: INFUSIONS #S 9-24
     Route: 042
  8. REMICADE [Suspect]
     Indication: RHEUMATOID ARTHRITIS
     Dosage: LOADING DOSE
     Route: 042
  9. REMICADE [Suspect]
     Dosage: INFUSIONS #S 9-24
     Route: 042
  10. REMICADE [Suspect]
     Dosage: INFUSION 25
     Route: 042
  11. REMICADE [Suspect]
     Dosage: INFUSION #70
     Route: 042
  12. REMICADE [Suspect]
     Route: 042
  13. REMICADE [Suspect]
     Dosage: INFUSIONS #S 9-24
     Route: 042
  14. REMICADE [Suspect]
     Route: 042
  15. METHOTREXATE [Concomitant]
     Route: 058
  16. VALPROIC ACID [Concomitant]
  17. LEUCOVORIN CALCIUM [Concomitant]
  18. IMITREX [Concomitant]
     Dosage: AS NECESSARY
  19. ZOPICLONE [Concomitant]
  20. TRUSOPT [Concomitant]
     Route: 047
  21. ALPHAGAN [Concomitant]

REACTIONS (2)
  - CHOROIDITIS [None]
  - UVEITIS [None]
